FAERS Safety Report 14426073 (Version 4)
Quarter: 2018Q2

REPORT INFORMATION
  Report Type: Spontaneous
  Country: IT (occurrence: IT)
  Receive Date: 20180123
  Receipt Date: 20180404
  Transmission Date: 20180711
  Serious: Yes (Other)
  Sender: FDA-Public Use
  Company Number: IT-BAUSCH-BL-2018-001626

PATIENT
  Age: 65 Year
  Sex: Male

DRUGS (4)
  1. FLUOROURACIL. [Suspect]
     Active Substance: FLUOROURACIL
     Indication: COLORECTAL CANCER
     Dosage: EVERY CYCLE FOR 12 CYCLES
     Route: 065
  2. OXALIPLATIN. [Suspect]
     Active Substance: OXALIPLATIN
     Indication: COLORECTAL CANCER
     Dosage: EVERY CYCLE FOR 12 CYCLES
     Route: 065
  3. FOLINIC ACID [Suspect]
     Active Substance: LEUCOVORIN
     Indication: COLORECTAL CANCER
     Dosage: EVERY CYCLE FOR 12 CYCLES
     Route: 065
  4. CALCIUM FOLINATE [Suspect]
     Active Substance: LEUCOVORIN CALCIUM
     Indication: COLORECTAL CANCER
     Dosage: EVERY CYCLE FOR 12 CYCLES
     Route: 065

REACTIONS (4)
  - Kaposi^s sarcoma [Recovered/Resolved]
  - Second primary malignancy [Recovering/Resolving]
  - Koebner phenomenon [Recovering/Resolving]
  - Viraemia [Recovered/Resolved]
